FAERS Safety Report 21239161 (Version 1)
Quarter: 2022Q3

REPORT INFORMATION
  Report Type: Spontaneous
  Country: US (occurrence: None)
  Receive Date: 20220819
  Receipt Date: 20220819
  Transmission Date: 20221026
  Serious: Yes (Hospitalization, Other)
  Sender: FDA-Public Use
  Company Number: None

PATIENT
  Age: 65 Year
  Sex: Female
  Weight: 83.1 kg

DRUGS (7)
  1. BIKTARVY [Suspect]
     Active Substance: BICTEGRAVIR SODIUM\EMTRICITABINE\TENOFOVIR ALAFENAMIDE FUMARATE
     Indication: HIV infection
     Dosage: FREQUENCY : DAILY;?
     Route: 048
  2. CARVEDILOL [Concomitant]
     Active Substance: CARVEDILOL
  3. CINACALCET [Concomitant]
     Active Substance: CINACALCET
  4. estradil [Concomitant]
  5. magnesium amino acids chelate [Concomitant]
  6. MYCOPHENOLIC ACID [Concomitant]
     Active Substance: MYCOPHENOLIC ACID
  7. TACROLIMUS [Concomitant]
     Active Substance: TACROLIMUS

REACTIONS (9)
  - Respiratory failure [None]
  - Hypotension [None]
  - Small intestinal obstruction [None]
  - Pancreatitis [None]
  - Ileus [None]
  - Nausea [None]
  - Vomiting [None]
  - Deep vein thrombosis [None]
  - Intestinal dilatation [None]

NARRATIVE: CASE EVENT DATE: 20220815
